FAERS Safety Report 6964695-0 (Version None)
Quarter: 2010Q3

REPORT INFORMATION
  Report Type: 
  Country: None (occurrence: None)
  Receive Date: 20100901
  Receipt Date: 20100817
  Transmission Date: 20110219
  Serious: Yes (Death, Hospitalization, Other)
  Sender: FDA-Public Use
  Company Number: POMP-1000439

PATIENT
  Age: 14 Year
  Sex: Male
  Weight: 53 kg

DRUGS (3)
  1. MYOZYME [Suspect]
     Indication: GLYCOGEN STORAGE DISEASE TYPE II
     Dosage: 1000 MG, Q2W, INTRAVENOUS
     Route: 042
     Dates: start: 20070704, end: 20081222
  2. PREDNISOLONE SODIUM SUCCINATE INJ [Concomitant]
  3. HYDROXYZINE HCL [Concomitant]

REACTIONS (15)
  - BRAIN COMPRESSION [None]
  - BRAIN STEM SYNDROME [None]
  - CEREBELLAR INFARCTION [None]
  - CEREBRAL HAEMORRHAGE [None]
  - CONVULSION [None]
  - FEELING HOT [None]
  - INFUSION SITE SWELLING [None]
  - INTRACRANIAL ANEURYSM [None]
  - LOSS OF CONSCIOUSNESS [None]
  - METABOLIC SYNDROME [None]
  - MIOSIS [None]
  - RESPIRATORY ARREST [None]
  - URINARY INCONTINENCE [None]
  - VISUAL IMPAIRMENT [None]
  - WEIGHT INCREASED [None]
